FAERS Safety Report 9664517 (Version 1)
Quarter: 2013Q4

REPORT INFORMATION
  Report Type: Spontaneous
  Country: US (occurrence: None)
  Receive Date: 20131030
  Receipt Date: 20131030
  Transmission Date: 20140711
  Serious: Yes (Hospitalization)
  Sender: FDA-Public Use
  Company Number: None

PATIENT
  Age: 67 Year
  Sex: Male
  Weight: 104.8 kg

DRUGS (1)
  1. VERAPAMIL [Suspect]
     Indication: HYPERTENSION
     Route: 048
     Dates: start: 20011120, end: 20130707

REACTIONS (5)
  - Nausea [None]
  - Vomiting [None]
  - Constipation [None]
  - Small intestinal obstruction [None]
  - Ileus [None]
